FAERS Safety Report 17211362 (Version 2)
Quarter: 2020Q1

REPORT INFORMATION
  Report Type: Spontaneous
  Country: JP (occurrence: JP)
  Receive Date: 20191228
  Receipt Date: 20200204
  Transmission Date: 20200409
  Serious: Yes (Other)
  Sender: FDA-Public Use
  Company Number: JP-AMGEN-JPNSP2019212263

PATIENT
  Age: 92 Year
  Sex: Female

DRUGS (5)
  1. EVENITY [Suspect]
     Active Substance: ROMOSOZUMAB-AQQG
     Dosage: 210 MILLIGRAM, QMO
     Route: 058
  2. WYPAX [Concomitant]
     Active Substance: LORAZEPAM
     Dosage: UNK
  3. EVENITY [Suspect]
     Active Substance: ROMOSOZUMAB-AQQG
     Indication: OSTEOPOROSIS
     Dosage: 210 MILLIGRAM, QMO
     Route: 058
     Dates: start: 20191129, end: 20191218
  4. MYSLEE [Concomitant]
     Active Substance: ZOLPIDEM TARTRATE
     Dosage: UNK
  5. HALCION [Concomitant]
     Active Substance: TRIAZOLAM
     Dosage: UNK

REACTIONS (5)
  - Hypoaesthesia [Recovered/Resolved]
  - Physical deconditioning [Recovered/Resolved]
  - Feeling abnormal [Recovered/Resolved]
  - Dizziness [Unknown]
  - Headache [Unknown]

NARRATIVE: CASE EVENT DATE: 20191129
